FAERS Safety Report 11424000 (Version 2)
Quarter: 2015Q3

REPORT INFORMATION
  Report Type: Spontaneous
  Country: US (occurrence: US)
  Receive Date: 20150827
  Receipt Date: 20150908
  Transmission Date: 20151125
  Serious: Yes (Hospitalization)
  Sender: FDA-Public Use
  Company Number: US-LPDUSPRD-20150640

PATIENT
  Age: 24 Year
  Sex: Female

DRUGS (2)
  1. CARBAMAZEPINE. [Concomitant]
     Active Substance: CARBAMAZEPINE
     Dosage: DOSE NOT PROVIDED
     Route: 065
  2. LEVETIRACETAM INJECTION (0517-3605-01) [Suspect]
     Active Substance: LEVETIRACETAM
     Dosage: 250MG INCREASED TO 1000MG BID
     Route: 065

REACTIONS (2)
  - Torsade de pointes [Recovered/Resolved]
  - Electrocardiogram QT prolonged [Recovered/Resolved]
